FAERS Safety Report 14011649 (Version 1)
Quarter: 2017Q3

REPORT INFORMATION
  Report Type: Spontaneous
  Country: US (occurrence: US)
  Receive Date: 20170926
  Receipt Date: 20170926
  Transmission Date: 20171128
  Serious: Yes (Hospitalization)
  Sender: FDA-Public Use
  Company Number: None

PATIENT
  Age: 72 Year
  Sex: Female
  Weight: 85.5 kg

DRUGS (9)
  1. ELIQUIS [Suspect]
     Active Substance: APIXABAN
     Indication: DEEP VEIN THROMBOSIS
     Dosage: ?          QUANTITY:1 TABLET(S);?
     Route: 048
     Dates: start: 20160901, end: 20170923
  2. ELIQUIS [Suspect]
     Active Substance: APIXABAN
     Indication: CEREBROVASCULAR ACCIDENT
     Dosage: ?          QUANTITY:1 TABLET(S);?
     Route: 048
     Dates: start: 20160901, end: 20170923
  3. COLCHICINE. [Concomitant]
     Active Substance: COLCHICINE
  4. ATIVAN [Concomitant]
     Active Substance: LORAZEPAM
  5. ALENDRONATE [Concomitant]
     Active Substance: ALENDRONATE SODIUM
  6. PHENOBARBITAL. [Concomitant]
     Active Substance: PHENOBARBITAL
  7. LIPITOR [Concomitant]
     Active Substance: ATORVASTATIN CALCIUM
  8. ALLOPURINOL. [Concomitant]
     Active Substance: ALLOPURINOL
  9. MULTIVITAMIN [Concomitant]
     Active Substance: VITAMINS

REACTIONS (2)
  - Thrombosis [None]
  - Arthralgia [None]

NARRATIVE: CASE EVENT DATE: 20170821
